FAERS Safety Report 7036161-8 (Version None)
Quarter: 2010Q4

REPORT INFORMATION
  Report Type: 
  Country: None (occurrence: None)
  Receive Date: 20101008
  Receipt Date: 20100430
  Transmission Date: 20110411
  Serious: No
  Sender: FDA-Public Use
  Company Number: US-BRISTOL-MYERS SQUIBB COMPANY-15080609

PATIENT
  Age: 72 Year
  Sex: Female

DRUGS (2)
  1. AVAPRO [Suspect]
     Indication: HYPERTENSION
     Dosage: 4 TO 5YRS
  2. HYDROCHLOROTHIAZIDE [Suspect]
     Dosage: TUES,THURS,SAT FOR 4 TO 5YRS

REACTIONS (2)
  - BLOOD POTASSIUM DECREASED [None]
  - OROPHARYNGEAL DISCOMFORT [None]
